FAERS Safety Report 9139991 (Version 2)
Quarter: 2013Q2

REPORT INFORMATION
  Report Type: Report from Study
  Country: US (occurrence: US)
  Receive Date: 20130305
  Receipt Date: 20130402
  Transmission Date: 20140414
  Serious: Yes (Death)
  Sender: FDA-Public Use
  Company Number: US-ASTELLAS-2013US002397

PATIENT
  Age: 52 Year
  Sex: Female
  Weight: 46 kg

DRUGS (1)
  1. ERLOTINIB TABLET [Suspect]
     Indication: NON-SMALL CELL LUNG CANCER
     Dosage: 150 MG, UID/QD
     Route: 048
     Dates: start: 200503

REACTIONS (5)
  - Malignant neoplasm progression [Fatal]
  - Gastrointestinal disorder [Unknown]
  - Weight decreased [Unknown]
  - Abdominal pain [Unknown]
  - Cough [Unknown]
